FAERS Safety Report 7679974-1 (Version None)
Quarter: 2011Q3

REPORT INFORMATION
  Report Type: 
  Country: None (occurrence: None)
  Receive Date: 20110812
  Receipt Date: 20110803
  Transmission Date: 20111222
  Serious: Yes (Hospitalization)
  Sender: FDA-Public Use
  Company Number: FR-TEVA-295340ISR

PATIENT
  Sex: Male
  Weight: 72.8 kg

DRUGS (16)
  1. DEXAMETHASONE [Suspect]
     Dates: start: 20091127
  2. NEXIUM [Concomitant]
     Dosage: 20 MILLIGRAM; EVENING
  3. SOPHIDONE [Concomitant]
     Indication: OESOPHAGITIS
     Dosage: 64 MILLIGRAM; MORNING AND EVENING
  4. ASPEGIC 325 [Concomitant]
     Indication: THROMBOSIS PROPHYLAXIS
     Dosage: 75 MILLIGRAM;
     Route: 048
     Dates: start: 20101104
  5. DAFLON [Concomitant]
     Dosage: 2000 MILLIGRAM;
  6. ASPIRIN [Concomitant]
     Indication: PRODUCT USED FOR UNKNOWN INDICATION
     Dosage: 75 AT MIDDAY
  7. AMITRIPTYLINE HCL [Concomitant]
     Indication: INSOMNIA
     Dosage: IN THE EVENING IF INSOMNIA
  8. LENALIDOMIDE [Suspect]
     Indication: MULTIPLE MYELOMA
     Route: 048
     Dates: start: 20101105
  9. LENALIDOMIDE [Suspect]
     Route: 048
     Dates: start: 20091127
  10. ENDOTHELON [Concomitant]
     Dosage: 60 MILLIGRAM;
  11. DEXAMETHASONE [Suspect]
     Indication: MULTIPLE MYELOMA
     Dosage: 5.7143 MILLIGRAM;
     Dates: start: 20101105
  12. AMOXICILLIN TRIHYDRATE [Concomitant]
     Indication: BACK PAIN
     Dosage: 4 GRAM;
  13. DEXAMETHASONE [Suspect]
     Dates: start: 20110101
  14. SODIUM BICARBONATE [Concomitant]
     Indication: BENIGN PROSTATIC HYPERPLASIA
     Dosage: MORNIG, MIDDAY, EVENING
     Route: 048
  15. ABSTRAL [Concomitant]
  16. FORLAX [Concomitant]

REACTIONS (1)
  - CEREBROVASCULAR ACCIDENT [None]
